FAERS Safety Report 9686874 (Version 1)
Quarter: 2013Q4

REPORT INFORMATION
  Report Type: Report from Study
  Country: US (occurrence: US)
  Receive Date: 20131113
  Receipt Date: 20131113
  Transmission Date: 20140711
  Serious: Yes (Hospitalization, Other)
  Sender: FDA-Public Use
  Company Number: US-US-EMD SERONO, INC.-7248655

PATIENT
  Age: 33 Year
  Sex: Female

DRUGS (1)
  1. REBIF [Suspect]
     Indication: MULTIPLE SCLEROSIS
     Route: 058
     Dates: start: 20130423, end: 201310

REACTIONS (8)
  - Sepsis [Unknown]
  - Ovarian cyst [Unknown]
  - Cervix disorder [Unknown]
  - Post procedural haematoma [Unknown]
  - Arterial disorder [Unknown]
  - Local swelling [Unknown]
  - Local swelling [Unknown]
  - Hypoaesthesia [Unknown]
